FAERS Safety Report 9036620 (Version 1)
Quarter: 2013Q1

REPORT INFORMATION
  Report Type: Spontaneous
  Country: US (occurrence: None)
  Receive Date: 20130122
  Receipt Date: 20130122
  Transmission Date: 20140127
  Serious: Yes (Other)
  Sender: FDA-Public Use
  Company Number: None

PATIENT
  Age: 54 Year
  Sex: Male

DRUGS (1)
  1. XELODA [Suspect]
     Dosage: 1500 MG BIDX14 DAYS OFF, PO
     Route: 048
     Dates: start: 20121121

REACTIONS (2)
  - Hypoaesthesia [None]
  - Gait disturbance [None]
